FAERS Safety Report 25937549 (Version 2)
Quarter: 2025Q4

REPORT INFORMATION
  Report Type: Spontaneous
  Country: EU (occurrence: EU)
  Receive Date: 20251018
  Receipt Date: 20251111
  Transmission Date: 20260118
  Serious: Yes (Hospitalization, Other)
  Sender: COSETTE PHARMACEUTICALS INC
  Company Number: None

PATIENT
  Age: 60 Year
  Sex: Female

DRUGS (15)
  1. AMBIEN [Suspect]
     Active Substance: ZOLPIDEM TARTRATE
     Indication: Insomnia
     Dosage: QD (ONCE A DAY)
     Route: 048
     Dates: start: 201512, end: 201601
  2. MELOXICAM [Suspect]
     Active Substance: MELOXICAM
     Indication: Product used for unknown indication
     Route: 030
     Dates: start: 201512, end: 201601
  3. MELOXICAM [Suspect]
     Active Substance: MELOXICAM
     Route: 065
  4. PAROXETINE HYDROCHLORIDE [Suspect]
     Active Substance: PAROXETINE HYDROCHLORIDE
     Indication: Product used for unknown indication
     Route: 048
     Dates: start: 201512, end: 201601
  5. NIMESULIDE [Suspect]
     Active Substance: NIMESULIDE
     Indication: Product used for unknown indication
     Dosage: 300 MG, QD  (100 MG, TID, 1 SACHET)
     Route: 048
     Dates: start: 201512, end: 201601
  6. RIBAVIRIN [Suspect]
     Active Substance: RIBAVIRIN
     Indication: Hepatitis C
     Dosage: UNK
     Route: 065
     Dates: start: 201509, end: 201512
  7. ACETAMINOPHEN\IBUPROFEN [Suspect]
     Active Substance: ACETAMINOPHEN\IBUPROFEN
     Indication: Product used for unknown indication
     Route: 048
     Dates: start: 201512, end: 201601
  8. MELDONIUM DIHYDRATE [Suspect]
     Active Substance: MELDONIUM DIHYDRATE
     Indication: Product used for unknown indication
     Route: 048
     Dates: start: 201512, end: 201601
  9. IPIDACRINE [Suspect]
     Active Substance: IPIDACRINE
     Indication: Product used for unknown indication
     Route: 048
     Dates: start: 201512, end: 201601
  10. PEGINTERFERON ALFA-2A [Suspect]
     Active Substance: PEGINTERFERON ALFA-2A
     Indication: Hepatitis C
     Route: 065
     Dates: start: 201509, end: 201512
  11. CHOLECALCIFEROL [Suspect]
     Active Substance: CHOLECALCIFEROL
     Indication: Product used for unknown indication
     Route: 048
     Dates: start: 201512, end: 201601
  12. METHYLPREDNISOLONE [Suspect]
     Active Substance: METHYLPREDNISOLONE
     Indication: Product used for unknown indication
     Route: 048
     Dates: start: 201512, end: 201601
  13. METHYLPREDNISOLONE [Suspect]
     Active Substance: METHYLPREDNISOLONE
     Route: 065
  14. METHYLPREDNISOLONE [Suspect]
     Active Substance: METHYLPREDNISOLONE
     Route: 048
  15. IBUPROFEN [Suspect]
     Active Substance: IBUPROFEN
     Indication: Product used for unknown indication
     Dosage: 1200 MG, QD
     Route: 048
     Dates: start: 201512, end: 201601

REACTIONS (41)
  - Synovitis [Recovering/Resolving]
  - Dry skin [Recovering/Resolving]
  - Decreased gait velocity [Recovering/Resolving]
  - Tearfulness [Recovering/Resolving]
  - Altered state of consciousness [Recovering/Resolving]
  - General physical health deterioration [Recovering/Resolving]
  - Cholelithiasis [Recovering/Resolving]
  - Coagulopathy [Recovering/Resolving]
  - Telangiectasia [Recovering/Resolving]
  - Hepatomegaly [Recovering/Resolving]
  - Burning sensation [Recovering/Resolving]
  - Paraesthesia [Recovering/Resolving]
  - Hepatic failure [Recovering/Resolving]
  - Poisoning [Recovering/Resolving]
  - Condition aggravated [Recovering/Resolving]
  - Palmar erythema [Recovering/Resolving]
  - Haemorrhage subcutaneous [Recovering/Resolving]
  - Hepatitis toxic [Recovering/Resolving]
  - Supraventricular extrasystoles [Recovering/Resolving]
  - Polyneuropathy [Recovering/Resolving]
  - Petechiae [Recovering/Resolving]
  - Rash erythematous [Recovering/Resolving]
  - Drug-induced liver injury [Recovering/Resolving]
  - Oedema peripheral [Recovering/Resolving]
  - Ligament rupture [Recovering/Resolving]
  - Sleep disorder [Recovering/Resolving]
  - Contusion [Recovering/Resolving]
  - Small fibre neuropathy [Recovering/Resolving]
  - Nausea [Recovering/Resolving]
  - Somnolence [Recovering/Resolving]
  - Jaundice [Recovering/Resolving]
  - Pain [Recovering/Resolving]
  - Affect lability [Recovering/Resolving]
  - Pain in extremity [Recovering/Resolving]
  - Asthenia [Recovering/Resolving]
  - Fatigue [Recovering/Resolving]
  - Dry mouth [Recovering/Resolving]
  - Fall [Recovering/Resolving]
  - Hyperbilirubinaemia [Recovering/Resolving]
  - Gait disturbance [Recovering/Resolving]
  - Drug ineffective [Unknown]

NARRATIVE: CASE EVENT DATE: 20151201
